FAERS Safety Report 15717946 (Version 1)
Quarter: 2018Q4

REPORT INFORMATION
  Report Type: Spontaneous
  Country: US (occurrence: US)
  Receive Date: 20181129
  Receipt Date: 20181129
  Transmission Date: 20190205
  Serious: Yes (Hospitalization)
  Sender: FDA-Public Use
  Company Number: None

PATIENT
  Age: 73 Year
  Sex: Male
  Weight: 77.11 kg

DRUGS (5)
  1. WARFARIN [Suspect]
     Active Substance: WARFARIN
     Indication: MITRAL VALVE REPAIR
     Route: 048
     Dates: start: 20171010
  2. AZITHROMYCIN ANHYDROUS. [Suspect]
     Active Substance: AZITHROMYCIN ANHYDROUS
     Indication: MITRAL VALVE REPAIR
     Route: 048
     Dates: start: 20180413, end: 20180417
  3. WARFARIN [Suspect]
     Active Substance: WARFARIN
     Indication: ATRIAL FIBRILLATION
     Route: 048
     Dates: start: 20171010
  4. WARFARIN [Suspect]
     Active Substance: WARFARIN
     Indication: PNEUMONIA
     Route: 048
     Dates: start: 20171010
  5. AZITHROMYCIN ANHYDROUS. [Suspect]
     Active Substance: AZITHROMYCIN ANHYDROUS
     Indication: ATRIAL FIBRILLATION
     Route: 048
     Dates: start: 20180413, end: 20180417

REACTIONS (3)
  - Cough [None]
  - Gastric haemorrhage [None]
  - International normalised ratio increased [None]

NARRATIVE: CASE EVENT DATE: 20180419
